FAERS Safety Report 9669747 (Version 1)
Quarter: 2013Q4

REPORT INFORMATION
  Report Type: Spontaneous
  Country: US (occurrence: None)
  Receive Date: 20131104
  Receipt Date: 20131104
  Transmission Date: 20140711
  Serious: Yes (Hospitalization)
  Sender: FDA-Public Use
  Company Number: None

PATIENT
  Age: 42 Year
  Sex: Male
  Weight: 96.62 kg

DRUGS (3)
  1. VORINOSTAT [Suspect]
     Indication: SQUAMOUS CELL CARCINOMA OF HEAD AND NECK
     Dosage: 2
     Dates: start: 20130923, end: 20131101
  2. CISPLATIN [Concomitant]
  3. RADIATION [Concomitant]

REACTIONS (1)
  - Vomiting [None]
